FAERS Safety Report 19519080 (Version 1)
Quarter: 2021Q3

REPORT INFORMATION
  Report Type: Spontaneous
  Country: US (occurrence: US)
  Receive Date: 20210712
  Receipt Date: 20210712
  Transmission Date: 20211014
  Serious: No
  Sender: FDA-Public Use
  Company Number: US-JNJFOC-20210705313

PATIENT
  Age: 80 Year
  Sex: Female
  Weight: 65.83 kg

DRUGS (1)
  1. XARELTO [Suspect]
     Active Substance: RIVAROXABAN
     Indication: THROMBOSIS
     Route: 048

REACTIONS (3)
  - Rash macular [Unknown]
  - Injection site haemorrhage [Unknown]
  - Body height decreased [Unknown]

NARRATIVE: CASE EVENT DATE: 20210701
